FAERS Safety Report 23755168 (Version 4)
Quarter: 2024Q3

REPORT INFORMATION
  Report Type: Report from Study
  Country: BR (occurrence: BR)
  Receive Date: 20240418
  Receipt Date: 20240731
  Transmission Date: 20241016
  Serious: Yes (Hospitalization)
  Sender: JOHNSON AND JOHNSON
  Company Number: BR-JNJFOC-20240169495

PATIENT
  Age: 40 Year
  Sex: Female
  Weight: 63 kg

DRUGS (5)
  1. INFLIXIMAB [Suspect]
     Active Substance: INFLIXIMAB
     Indication: Crohn^s disease
     Route: 041
     Dates: start: 20240116
  2. INFLIXIMAB [Suspect]
     Active Substance: INFLIXIMAB
     Route: 041
     Dates: start: 20230927
  3. INFLIXIMAB [Suspect]
     Active Substance: INFLIXIMAB
     Indication: Crohn^s disease
     Route: 041
     Dates: start: 2015, end: 2018
  4. INFLIXIMAB [Suspect]
     Active Substance: INFLIXIMAB
     Dosage: LAST DRUG APPLICATION: 7-NOV-2023
     Route: 041
     Dates: start: 20230927
  5. REMICADE [Suspect]
     Active Substance: INFLIXIMAB
     Indication: Crohn^s disease
     Dosage: LAST DRUG APPLICATION: 7-NOV-2023
     Route: 041
     Dates: start: 20230927

REACTIONS (4)
  - Post procedural infection [Unknown]
  - Crohn^s disease [Unknown]
  - Dengue fever [Recovered/Resolved]
  - Off label use [Unknown]

NARRATIVE: CASE EVENT DATE: 20240105
